FAERS Safety Report 23235335 (Version 2)
Quarter: 2023Q4

REPORT INFORMATION
  Report Type: Spontaneous
  Country: US (occurrence: US)
  Receive Date: 20231128
  Receipt Date: 20231205
  Transmission Date: 20240110
  Serious: Yes (Other)
  Sender: FDA-Public Use
  Company Number: US-PFIZER INC-PV202300189801

PATIENT
  Age: 27 Year
  Sex: Female

DRUGS (5)
  1. TESTOSTERONE CYPIONATE [Suspect]
     Active Substance: TESTOSTERONE CYPIONATE
     Indication: Transgender hormonal therapy
     Dosage: 60 MG, WEEKLY
  2. TESTOSTERONE CYPIONATE [Suspect]
     Active Substance: TESTOSTERONE CYPIONATE
     Dosage: 80 MG, WEEKLY
  3. TESTOSTERONE CYPIONATE [Suspect]
     Active Substance: TESTOSTERONE CYPIONATE
     Dosage: 60 MG, WEEKLY
  4. CABERGOLINE [Concomitant]
     Active Substance: CABERGOLINE
     Indication: Hyperprolactinaemia
     Dosage: 0.5 MG, 2X/WEEK
  5. CABERGOLINE [Concomitant]
     Active Substance: CABERGOLINE
     Dosage: 1 MG, 2X/WEEK

REACTIONS (3)
  - Hyperprolactinaemia [Unknown]
  - Disease recurrence [Unknown]
  - Off label use [Unknown]
